FAERS Safety Report 5622460-0 (Version None)
Quarter: 2008Q1

REPORT INFORMATION
  Report Type: 
  Country: None (occurrence: None)
  Receive Date: 20080211
  Receipt Date: 20080130
  Transmission Date: 20080703
  Serious: Yes (Other)
  Sender: FDA-Public Use
  Company Number: US-PFIZER INC-2008010148

PATIENT
  Sex: Female
  Weight: 74.8 kg

DRUGS (8)
  1. DETROL LA [Suspect]
     Indication: HYPERTONIC BLADDER
  2. IBUPROFEN [Suspect]
     Indication: ARTHRITIS
  3. ALL OTHER THERAPEUTIC PRODUCTS [Suspect]
     Indication: DYSPEPSIA
  4. EVISTA [Concomitant]
  5. NIZATIDINE [Concomitant]
     Indication: DYSPEPSIA
  6. OMEPRAZOLE [Concomitant]
     Indication: DYSPEPSIA
  7. TRAMADOL HCL [Concomitant]
  8. AMLODIPINE [Concomitant]
     Indication: HYPERTENSION

REACTIONS (3)
  - CATARACT [None]
  - DYSPHAGIA [None]
  - GAIT DISTURBANCE [None]
